FAERS Safety Report 8057335-3 (Version None)
Quarter: 2012Q1

REPORT INFORMATION
  Report Type: 
  Country: None (occurrence: None)
  Receive Date: 20120119
  Receipt Date: 20120116
  Transmission Date: 20120608
  Serious: Yes (Hospitalization)
  Sender: FDA-Public Use
  Company Number: BR-ABBOTT-11P-020-0721554-00

PATIENT
  Sex: Female
  Weight: 72 kg

DRUGS (5)
  1. HUMIRA [Suspect]
     Indication: RHEUMATOID ARTHRITIS
     Route: 058
     Dates: start: 20091001, end: 20110901
  2. OMEPRAZOLE [Concomitant]
     Indication: PROPHYLAXIS
  3. OMEPRAZOLE [Concomitant]
     Indication: GASTRIC DISORDER
     Route: 048
  4. HUMIRA [Suspect]
     Dates: start: 20120102
  5. AZACORT [Concomitant]
     Indication: RHEUMATOID ARTHRITIS
     Route: 048
     Dates: start: 20091001

REACTIONS (8)
  - PULMONARY OEDEMA [None]
  - COUGH [None]
  - BRONCHITIS CHRONIC [None]
  - NASOPHARYNGITIS [None]
  - HAEMOPTYSIS [None]
  - WEIGHT INCREASED [None]
  - BACK PAIN [None]
  - PNEUMONIA [None]
